FAERS Safety Report 9413018 (Version 2)
Quarter: 2013Q3

REPORT INFORMATION
  Report Type: Spontaneous
  Country: US (occurrence: US)
  Receive Date: 20130722
  Receipt Date: 20130819
  Transmission Date: 20140515
  Serious: Yes (Hospitalization)
  Sender: FDA-Public Use
  Company Number: US-GLAXOSMITHKLINE-A1034023A

PATIENT
  Age: 69 Year
  Sex: Male
  Weight: 38.3 kg

DRUGS (6)
  1. MELPHALAN [Suspect]
     Indication: DIFFUSE LARGE B-CELL LYMPHOMA
     Dosage: 250MG PER DAY
     Route: 042
     Dates: start: 20130526, end: 20130526
  2. VELCADE [Suspect]
     Indication: DIFFUSE LARGE B-CELL LYMPHOMA
     Route: 065
  3. RITUXIMAB [Suspect]
     Indication: DIFFUSE LARGE B-CELL LYMPHOMA
     Dosage: 800MG PER DAY
     Route: 042
     Dates: start: 20130509, end: 20130516
  4. CARMUSTINE [Suspect]
     Indication: DIFFUSE LARGE B-CELL LYMPHOMA
     Dosage: 561MG PER DAY
     Route: 042
     Dates: start: 20130521, end: 20130521
  5. CYTARABINE [Suspect]
     Indication: DIFFUSE LARGE B-CELL LYMPHOMA
     Dosage: 190MG TWICE PER DAY
     Route: 042
     Dates: start: 20130522, end: 20130525
  6. ETOPOSIDE [Suspect]
     Indication: DIFFUSE LARGE B-CELL LYMPHOMA
     Dosage: 190MG TWICE PER DAY
     Route: 042
     Dates: start: 20130522, end: 20130525

REACTIONS (1)
  - Febrile neutropenia [Recovered/Resolved]
